FAERS Safety Report 8601968-X (Version None)
Quarter: 2012Q3

REPORT INFORMATION
  Report Type: 
  Country: None (occurrence: None)
  Receive Date: 20120817
  Receipt Date: 20120614
  Transmission Date: 20120928
  Serious: No
  Sender: FDA-Public Use
  Company Number: US-BRISTOL-MYERS SQUIBB COMPANY-16687287

PATIENT

DRUGS (8)
  1. AMBIEN [Concomitant]
  2. PREDNISONE TAB [Concomitant]
  3. SPRYCEL [Suspect]
  4. VALTREX [Concomitant]
  5. MORPHINE [Concomitant]
     Indication: BACK PAIN
  6. BACTRIM [Concomitant]
  7. MORPHINE [Concomitant]
     Indication: HEADACHE
  8. ATIVAN [Concomitant]

REACTIONS (3)
  - PERIORBITAL OEDEMA [None]
  - URINARY TRACT INFECTION [None]
  - HYPERSENSITIVITY [None]
